FAERS Safety Report 15258846 (Version 2)
Quarter: 2018Q4

REPORT INFORMATION
  Report Type: Report from Study
  Country: JP (occurrence: JP)
  Receive Date: 20180809
  Receipt Date: 20181130
  Transmission Date: 20190204
  Serious: Yes (Other)
  Sender: FDA-Public Use
  Company Number: JP-ASTRAZENECA-2018SF00604

PATIENT
  Age: 71 Year
  Sex: Female

DRUGS (9)
  1. SEIBULE [Concomitant]
     Active Substance: MIGLITOL
     Dates: start: 20140331
  2. CRESTOR [Concomitant]
     Active Substance: ROSUVASTATIN CALCIUM
  3. PRANLUKAST [Concomitant]
     Active Substance: PRANLUKAST
  4. VASOLAN [Concomitant]
     Active Substance: VERAPAMIL HYDROCHLORIDE
  5. CARBOCISTEINE [Concomitant]
     Active Substance: CARBOCYSTEINE
     Route: 048
  6. ONGLYZA [Suspect]
     Active Substance: SAXAGLIPTIN HYDROCHLORIDE
     Indication: TYPE 2 DIABETES MELLITUS
     Route: 048
     Dates: start: 20140331, end: 20140919
  7. SOPREROLE [Concomitant]
  8. REBAMIPIDE [Concomitant]
     Active Substance: REBAMIPIDE
  9. VIVIANT [Concomitant]
     Active Substance: BAZEDOXIFENE

REACTIONS (1)
  - Haemorrhage subcutaneous [Recovered/Resolved]

NARRATIVE: CASE EVENT DATE: 20140718
